FAERS Safety Report 15300410 (Version 2)
Quarter: 2018Q3

REPORT INFORMATION
  Report Type: Spontaneous
  Country: JP (occurrence: JP)
  Receive Date: 20180821
  Receipt Date: 20180831
  Transmission Date: 20181010
  Serious: Yes (Other)
  Sender: FDA-Public Use
  Company Number: JP-BAYER-2018-151960

PATIENT

DRUGS (1)
  1. BAYASPIRIN 100 MG [Suspect]
     Active Substance: ASPIRIN
     Dosage: 100 MG, QD
     Route: 048

REACTIONS (3)
  - Arteriovenous shunt operation [None]
  - Haemodialysis [None]
  - Renal impairment [None]
